FAERS Safety Report 9310297 (Version 2)
Quarter: 2013Q2

REPORT INFORMATION
  Report Type: Spontaneous
  Country: CO (occurrence: CO)
  Receive Date: 20130527
  Receipt Date: 20130529
  Transmission Date: 20140414
  Serious: Yes (Death, Other)
  Sender: FDA-Public Use
  Company Number: CO-PFIZER INC-2013160944

PATIENT
  Age: 84 Year
  Sex: Female

DRUGS (3)
  1. ZOLOF [Suspect]
     Indication: AGGRESSION
     Dosage: 50 MG, 1X/DAY
     Route: 048
     Dates: start: 2006, end: 20130406
  2. OMEPRAZOL [Concomitant]
     Indication: PROPHYLAXIS
     Dosage: 50 MG, 1X/DAY
     Route: 048
     Dates: start: 2006, end: 20130406
  3. MACRODANTINA [Concomitant]
     Indication: PROPHYLAXIS
     Dosage: UNK, 1X/DAY
     Dates: start: 2011, end: 20130406

REACTIONS (4)
  - Respiratory arrest [Fatal]
  - Lung disorder [Unknown]
  - Hypertension [Unknown]
  - Off label use [Unknown]
